FAERS Safety Report 4455087-7 (Version None)
Quarter: 2004Q3

REPORT INFORMATION
  Report Type: 
  Country: None (occurrence: None)
  Receive Date: 20040917
  Receipt Date: 20040909
  Transmission Date: 20050211
  Serious: No
  Sender: FDA-Public Use
  Company Number: 04H-163-0272850-00

PATIENT
  Age: 22 Year
  Sex: Female

DRUGS (1)
  1. MORPHINE SULFATE [Suspect]
     Indication: ABDOMINAL PAIN
     Dosage: 2 MG, INTRAVENOUS
     Route: 042

REACTIONS (2)
  - DYSPNOEA [None]
  - URTICARIA [None]
